FAERS Safety Report 4306273-8 (Version None)
Quarter: 2004Q1

REPORT INFORMATION
  Report Type: 
  Country: None (occurrence: None)
  Receive Date: 20040225
  Receipt Date: 20030422
  Transmission Date: 20041129
  Serious: Yes (Other)
  Sender: FDA-Public Use
  Company Number: US-BRISTOL-MYERS SQUIBB COMPANY-12247920

PATIENT
  Sex: Female
  Weight: 53 kg

DRUGS (1)
  1. EXCEDRIN (MIGRAINE) [Suspect]
     Indication: TOOTHACHE
     Route: 048
     Dates: start: 20030420, end: 20030422

REACTIONS (1)
  - HAEMATEMESIS [None]
